FAERS Safety Report 7917597-7 (Version None)
Quarter: 2011Q4

REPORT INFORMATION
  Report Type: 
  Country: None (occurrence: None)
  Receive Date: 20111116
  Receipt Date: 20111110
  Transmission Date: 20120403
  Serious: Yes (Hospitalization, Other)
  Sender: FDA-Public Use
  Company Number: FR-SANOFI-AVENTIS-200915752EU

PATIENT
  Age: 76 Year
  Sex: Female
  Weight: 99 kg

DRUGS (16)
  1. WARFARIN SODIUM [Suspect]
     Indication: PULMONARY EMBOLISM
     Dosage: INR ADJUSTED
     Route: 048
     Dates: start: 20090908, end: 20090917
  2. ISOPTIN [Concomitant]
     Route: 048
  3. ENOXAPARIN SODIUM [Suspect]
     Route: 058
     Dates: start: 20090923, end: 20090924
  4. ENOXAPARIN SODIUM [Suspect]
     Route: 058
     Dates: start: 20090924, end: 20090925
  5. PAROXETINE HCL [Concomitant]
     Route: 048
  6. INDAPAMIDE [Concomitant]
     Route: 048
     Dates: start: 20090909
  7. TRAMADOL HCL [Concomitant]
     Dates: start: 20090916, end: 20090923
  8. WARFARIN SODIUM [Suspect]
     Route: 048
     Dates: start: 20090928, end: 20090928
  9. KARDEGIC /FRA/ [Concomitant]
     Route: 048
     Dates: start: 20080101, end: 20090913
  10. INDAPAMIDE [Concomitant]
     Route: 048
  11. STILNOX /FRA/ [Concomitant]
     Route: 048
  12. ALLOPURINOL [Concomitant]
     Route: 048
  13. ENOXAPARIN SODIUM [Suspect]
     Route: 058
     Dates: start: 20090926, end: 20090929
  14. PRIMPERAN TAB [Concomitant]
     Dates: start: 20090916, end: 20090928
  15. ENOXAPARIN SODIUM [Suspect]
     Indication: PULMONARY EMBOLISM
     Route: 058
     Dates: start: 20090908, end: 20090916
  16. LIPANTHYL ^THISSEN^ [Concomitant]
     Route: 048

REACTIONS (4)
  - ABDOMINAL PAIN [None]
  - SHOCK HAEMORRHAGIC [None]
  - RENAL FAILURE ACUTE [None]
  - ABDOMINAL WALL HAEMATOMA [None]
